FAERS Safety Report 23673280 (Version 1)
Quarter: 2024Q1

REPORT INFORMATION
  Report Type: Spontaneous
  Country: IT (occurrence: IT)
  Receive Date: 20240326
  Receipt Date: 20240326
  Transmission Date: 20240409
  Serious: Yes (Hospitalization)
  Sender: FDA-Public Use
  Company Number: None

PATIENT
  Age: 63 Year
  Sex: Male

DRUGS (4)
  1. RECARBRIO [Suspect]
     Active Substance: CILASTATIN\IMIPENEM ANHYDROUS\RELEBACTAM ANHYDROUS
     Indication: Sepsis
     Dosage: 1 VIAL
     Route: 042
     Dates: start: 20240308, end: 20240308
  2. FLUCONAZOLE [Concomitant]
     Active Substance: FLUCONAZOLE
  3. MEROPENEM [Concomitant]
     Active Substance: MEROPENEM
  4. LINEZOLID [Concomitant]
     Active Substance: LINEZOLID

REACTIONS (1)
  - Drug eruption [Recovered/Resolved]

NARRATIVE: CASE EVENT DATE: 20240308
